FAERS Safety Report 19826900 (Version 2)
Quarter: 2021Q4

REPORT INFORMATION
  Report Type: Spontaneous
  Country: US (occurrence: US)
  Receive Date: 20210913
  Receipt Date: 20211125
  Transmission Date: 20220304
  Serious: Yes (Other)
  Sender: FDA-Public Use
  Company Number: US-SUN PHARMACEUTICAL INDUSTRIES LTD-2021R1-309697

PATIENT
  Sex: Male

DRUGS (1)
  1. YONSA [Suspect]
     Active Substance: ABIRATERONE ACETATE
     Indication: Product used for unknown indication
     Dosage: UNK
     Route: 065

REACTIONS (7)
  - Foreign body in throat [Unknown]
  - Choking [Unknown]
  - Dysphagia [Unknown]
  - Muscle spasms [Unknown]
  - Retching [Unknown]
  - Product physical issue [Unknown]
  - Vomiting [Unknown]
